FAERS Safety Report 7524709-6 (Version None)
Quarter: 2011Q2

REPORT INFORMATION
  Report Type: 
  Country: None (occurrence: None)
  Receive Date: 20110606
  Receipt Date: 20110523
  Transmission Date: 20111010
  Serious: Yes (Hospitalization)
  Sender: FDA-Public Use
  Company Number: DE-AMGEN-DEUSP2011026418

PATIENT
  Sex: Male

DRUGS (3)
  1. ETOPOSIDE [Concomitant]
     Indication: BRONCHIAL CARCINOMA
  2. CISPLATIN [Concomitant]
     Indication: BRONCHIAL CARCINOMA
  3. NEULASTA [Suspect]
     Indication: CHEMOTHERAPY

REACTIONS (2)
  - MYOCARDIAL INFARCTION [None]
  - LEUKOCYTOSIS [None]
